FAERS Safety Report 6235462-0 (Version None)
Quarter: 2009Q2

REPORT INFORMATION
  Report Type: 
  Country: None (occurrence: None)
  Receive Date: 20090618
  Receipt Date: 20081030
  Transmission Date: 20091009
  Serious: No
  Sender: FDA-Public Use
  Company Number: US-ASTRAZENECA-2005UW09645

PATIENT
  Sex: Female

DRUGS (3)
  1. RHINOCORT [Suspect]
     Dosage: 1 SPRAY
     Route: 045
  2. ESTROGEN [Concomitant]
  3. LORATADINE [Concomitant]

REACTIONS (2)
  - COUGH [None]
  - DYSGEUSIA [None]
